FAERS Safety Report 13293264 (Version 1)
Quarter: 2017Q1

REPORT INFORMATION
  Report Type: Spontaneous
  Country: US (occurrence: US)
  Receive Date: 20170303
  Receipt Date: 20170303
  Transmission Date: 20170428
  Serious: No
  Sender: FDA-Public Use
  Company Number: US-JNJFOC-20170118009

PATIENT

DRUGS (1)
  1. XARELTO [Suspect]
     Active Substance: RIVAROXABAN
     Indication: PRODUCT USED FOR UNKNOWN INDICATION
     Dosage: 15 MG PRESCRIBED FOR 3 WEEKS THEN INCREASED TO 20 MG
     Route: 048
     Dates: start: 20160805

REACTIONS (4)
  - Wound haemorrhage [Unknown]
  - Urticaria [Unknown]
  - Blister [Unknown]
  - Skin atrophy [Unknown]
